FAERS Safety Report 14930165 (Version 1)
Quarter: 2018Q2

REPORT INFORMATION
  Report Type: Spontaneous
  Country: DK (occurrence: DK)
  Receive Date: 20180523
  Receipt Date: 20180523
  Transmission Date: 20180711
  Serious: Yes (Other)
  Sender: FDA-Public Use
  Company Number: DK-ELI_LILLY_AND_COMPANY-DK201805009791

PATIENT
  Age: 69 Year
  Sex: Female
  Weight: 65 kg

DRUGS (2)
  1. LARTRUVO [Suspect]
     Active Substance: OLARATUMAB
     Indication: SOFT TISSUE SARCOMA
     Dosage: 975 MG, OTHER
     Route: 042
     Dates: start: 20180109
  2. DOXORUBICIN [Concomitant]
     Active Substance: DOXORUBICIN
     Indication: SOFT TISSUE SARCOMA
     Dosage: UNK UNK, UNKNOWN
     Route: 065
     Dates: start: 20180109

REACTIONS (2)
  - Pulmonary embolism [Recovering/Resolving]
  - Dyspnoea exertional [Recovering/Resolving]

NARRATIVE: CASE EVENT DATE: 201804
